FAERS Safety Report 13746857 (Version 1)
Quarter: 2017Q3

REPORT INFORMATION
  Report Type: Spontaneous
  Country: US (occurrence: US)
  Receive Date: 20170712
  Receipt Date: 20170712
  Transmission Date: 20171127
  Serious: Yes (Death)
  Sender: FDA-Public Use
  Company Number: None

PATIENT
  Age: 73 Year
  Sex: Male

DRUGS (8)
  1. OXYCODONE [Concomitant]
     Active Substance: OXYCODONE
  2. PROCHLORPER [Concomitant]
  3. LONSURF [Suspect]
     Active Substance: TIPIRACIL HYDROCHLORIDE\TRIFLURIDINE
     Indication: COLON CANCER
     Route: 048
     Dates: start: 20170701, end: 20170709
  4. ESSIAC [Concomitant]
  5. BOSWELLIA [Concomitant]
  6. ELIQUIS [Concomitant]
     Active Substance: APIXABAN
  7. MORPH [Concomitant]
     Active Substance: MORPHINE
  8. CURCUMN [Concomitant]

REACTIONS (1)
  - Death [None]
